FAERS Safety Report 5293040-4 (Version None)
Quarter: 2007Q2

REPORT INFORMATION
  Report Type: 
  Country: None (occurrence: None)
  Receive Date: 20070411
  Receipt Date: 20070329
  Transmission Date: 20071010
  Serious: Yes (Other)
  Sender: FDA-Public Use
  Company Number: PHEH2006US10575

PATIENT
  Age: 56 Year
  Sex: Male

DRUGS (1)
  1. ZOMETA [Suspect]
     Indication: MULTIPLE MYELOMA
     Dosage: UNK QMO
     Route: 042
     Dates: start: 20050501, end: 20060601

REACTIONS (19)
  - ANXIETY [None]
  - BONE DISORDER [None]
  - BONE OPERATION [None]
  - DECREASED INTEREST [None]
  - DENTAL CLEANING [None]
  - DRY MOUTH [None]
  - INJURY [None]
  - LEUKOPLAKIA [None]
  - MASTICATION DISORDER [None]
  - ORAL SOFT TISSUE DISORDER [None]
  - ORAL TORUS [None]
  - OSTEONECROSIS [None]
  - PAIN [None]
  - PRIMARY SEQUESTRUM [None]
  - STEM CELL TRANSPLANT [None]
  - STENT PLACEMENT [None]
  - SWELLING [None]
  - TONGUE ULCERATION [None]
  - TOOTH REPAIR [None]
